FAERS Safety Report 5287710-1 (Version None)
Quarter: 2007Q1

REPORT INFORMATION
  Report Type: 
  Country: None (occurrence: None)
  Receive Date: 20070116
  Receipt Date: 20060917
  Transmission Date: 20070707
  Serious: No
  Sender: FDA-Public Use
  Company Number: 2006SP003316

PATIENT
  Age: 77 Year
  Sex: Male
  Weight: 81.6475 kg

DRUGS (7)
  1. LUNESTA [Suspect]
     Indication: INSOMNIA
     Dosage: SEE IMAGE
     Route: 048
     Dates: start: 20060701, end: 20060710
  2. LUNESTA [Suspect]
     Indication: INSOMNIA
     Dosage: SEE IMAGE
     Route: 048
     Dates: start: 20060713
  3. LISINOPRIL [Concomitant]
  4. NOVOLIN 50/50 [Concomitant]
  5. NEXIUM [Concomitant]
  6. SIMVASTATIN [Concomitant]
  7. ASPIRIN [Concomitant]

REACTIONS (2)
  - DRUG DEPENDENCE [None]
  - INSOMNIA [None]
